FAERS Safety Report 21474674 (Version 1)
Quarter: 2022Q4

REPORT INFORMATION
  Report Type: Spontaneous
  Country: JP (occurrence: JP)
  Receive Date: 20221018
  Receipt Date: 20221018
  Transmission Date: 20230113
  Serious: Yes (Hospitalization)
  Sender: FDA-Public Use
  Company Number: jp-jnjfoc-20221023258

PATIENT

DRUGS (1)
  1. NUCYNTA [Suspect]
     Active Substance: TAPENTADOL HYDROCHLORIDE
     Indication: Cancer pain
     Dosage: 50 MILLIGRAM, EVERY 12 HRS
     Route: 048

REACTIONS (2)
  - Hospitalisation [Unknown]
  - Product availability issue [Unknown]

NARRATIVE: CASE EVENT DATE: 20221007
